FAERS Safety Report 8575702-6 (Version None)
Quarter: 2012Q3

REPORT INFORMATION
  Report Type: 
  Country: None (occurrence: None)
  Receive Date: 20120807
  Receipt Date: 20120723
  Transmission Date: 20120928
  Serious: No
  Sender: FDA-Public Use
  Company Number: US-009507513-1207USA009499

PATIENT

DRUGS (14)
  1. CLARITIN-D 24 HOUR [Suspect]
     Indication: RESPIRATORY TRACT CONGESTION
  2. CLARITIN-D 24 HOUR [Suspect]
     Indication: RHINORRHOEA
  3. CLARITIN-D 24 HOUR [Suspect]
     Indication: COUGH
  4. HYDROCODONE BITARTRATE [Concomitant]
     Indication: SPINAL CORD INJURY
     Dosage: 500 MG, UNKNOWN
  5. TYLENOL [Concomitant]
     Indication: PAIN
     Dosage: 500 MG, UNKNOWN
  6. CLONIDINE [Concomitant]
     Indication: HYPERTENSION
     Dosage: .01 MG, UNKNOWN
  7. CLARITIN-D 24 HOUR [Suspect]
     Indication: INFLUENZA
     Dosage: 10 MG, QD
     Route: 048
     Dates: start: 20120617, end: 20120623
  8. LOVAZA [Concomitant]
     Indication: HYPERTENSION
     Dosage: 1000 MG, UNKNOWN
  9. ALLOPURINOL [Concomitant]
     Indication: NEPHROLITHIASIS
     Dosage: 300 MG, UNKNOWN
  10. PAXIL [Concomitant]
     Indication: DEPRESSION
     Dosage: 10 MG, UNKNOWN
  11. LORAZEPAM [Concomitant]
     Indication: INSOMNIA
     Dosage: 1 MG, UNKNOWN
  12. ATENOLOL [Concomitant]
     Indication: HYPERTENSION
     Dosage: 25 MG, UNKNOWN
  13. LISINOPRIL [Concomitant]
     Indication: HYPERTENSION
     Dosage: 40 MG, UNKNOWN
  14. CRESTOR [Concomitant]
     Indication: HYPERTENSION
     Dosage: 20 MG, UNKNOWN

REACTIONS (1)
  - DRUG INEFFECTIVE [None]
